FAERS Safety Report 6829685-7 (Version None)
Quarter: 2010Q3

REPORT INFORMATION
  Report Type: 
  Country: None (occurrence: None)
  Receive Date: 20100706
  Receipt Date: 20100622
  Transmission Date: 20110219
  Serious: Yes (Hospitalization)
  Sender: FDA-Public Use
  Company Number: UTC-001144

PATIENT
  Age: 52 Year
  Sex: Female
  Weight: 106.8 kg

DRUGS (12)
  1. REMODULIN [Suspect]
     Indication: PULMONARY ARTERIAL HYPERTENSION
     Dosage: 13.32 UG/KG (0.00925 UG/KG, 1 IN 1 MIN), INTRAVENOUS
     Route: 042
     Dates: start: 20080804
  2. TRACLEER [Concomitant]
  3. METFORMIN HCL [Concomitant]
  4. LASIX [Concomitant]
  5. LISINOPRIL [Concomitant]
  6. AMITRIPTYLINE HYDROCHLORIDE [Concomitant]
  7. OXYGEN (OXYGEN) [Concomitant]
  8. MULTIVITAMIN [Concomitant]
  9. REVATIO [Concomitant]
  10. PREVACID [Concomitant]
  11. IMODIUM [Concomitant]
  12. COUMADIN [Concomitant]

REACTIONS (4)
  - ANTIBIOTIC RESISTANT STAPHYLOCOCCUS TEST POSITIVE [None]
  - CHEST PAIN [None]
  - DEVICE RELATED INFECTION [None]
  - JUGULAR VEIN THROMBOSIS [None]
